FAERS Safety Report 10758789 (Version 1)
Quarter: 2015Q1

REPORT INFORMATION
  Report Type: Spontaneous
  Country: US (occurrence: None)
  Receive Date: 20150123
  Receipt Date: 20150123
  Transmission Date: 20150721
  Serious: No
  Sender: FDA-Public Use
  Company Number: 2014TUS011284

PATIENT
  Sex: Female

DRUGS (1)
  1. ENTYVIO [Suspect]
     Active Substance: VEDOLIZUMAB
     Indication: GASTROENTERITIS
     Dosage: 300 MG, 4.8 ML STERILE H20 IN 250 ML NS/IV 30 MM, INTRAVENOUS
     Route: 042
     Dates: start: 20141016, end: 20141016

REACTIONS (3)
  - Malaise [None]
  - Respiratory tract infection [None]
  - Off label use [None]
